FAERS Safety Report 13629530 (Version 2)
Quarter: 2017Q2

REPORT INFORMATION
  Report Type: Report from Study
  Country: DE (occurrence: DE)
  Receive Date: 20170608
  Receipt Date: 20170613
  Transmission Date: 20170830
  Serious: Yes (Hospitalization)
  Sender: FDA-Public Use
  Company Number: DE-SEATTLE GENETICS-2017SGN01164

PATIENT

DRUGS (14)
  1. VENLAFAXIN [Concomitant]
     Active Substance: VENLAFAXINE HYDROCHLORIDE
     Dosage: 225 MG, UNK
     Route: 065
     Dates: start: 20170320, end: 20170601
  2. MODAFINIL. [Concomitant]
     Active Substance: MODAFINIL
     Dosage: 100 MG, UNK
     Route: 065
     Dates: start: 20170320, end: 20170601
  3. MODAFINIL. [Concomitant]
     Active Substance: MODAFINIL
     Dosage: 100 MG, UNK
     Route: 065
     Dates: start: 20170320, end: 20170608
  4. VENLAFAXIN [Concomitant]
     Active Substance: VENLAFAXINE HYDROCHLORIDE
     Dosage: 225 MG, UNK
     Route: 065
     Dates: start: 20170320, end: 20170508
  5. PANTOPRAZOLE [Concomitant]
     Active Substance: PANTOPRAZOLE
     Dosage: 40 MG, UNK
     Route: 065
     Dates: start: 20170430, end: 20170608
  6. METOPROLOL TARTRATE. [Concomitant]
     Active Substance: METOPROLOL TARTRATE
     Dosage: 25 MG, UNK
     Route: 065
     Dates: start: 20170320, end: 20170508
  7. PREDNISONE. [Suspect]
     Active Substance: PREDNISONE
     Indication: HODGKIN^S DISEASE
     Dosage: 500 MG, UNK
     Route: 065
     Dates: start: 20170422, end: 20170606
  8. DOXORUBICIN [Suspect]
     Active Substance: DOXORUBICIN
     Indication: HODGKIN^S DISEASE
     Dosage: 50 MG/M2, UNK
     Route: 065
     Dates: start: 20170421, end: 20170606
  9. METOPROLOL TARTRATE. [Concomitant]
     Active Substance: METOPROLOL TARTRATE
     Dosage: 2.5 MG, UNK
     Route: 065
     Dates: start: 20170320, end: 20170608
  10. PANTOPRAZOLE [Concomitant]
     Active Substance: PANTOPRAZOLE
     Dosage: 40 MG, UNK
     Route: 065
     Dates: start: 20170430, end: 20170601
  11. CYCLOPHOSPHAMIDE. [Suspect]
     Active Substance: CYCLOPHOSPHAMIDE
     Indication: HODGKIN^S DISEASE
     Dosage: 750 MG/M2, UNK
     Route: 065
     Dates: start: 20170421, end: 20170606
  12. VENLAFAXIN [Concomitant]
     Active Substance: VENLAFAXINE HYDROCHLORIDE
     Dosage: 22.5 MG, UNK
     Route: 065
     Dates: start: 20170320, end: 20170608
  13. BRENTUXIMAB VEDOTIN [Suspect]
     Active Substance: BRENTUXIMAB VEDOTIN
     Indication: HODGKIN^S DISEASE
     Dosage: 1.8 MG/KG, UNK
     Route: 065
     Dates: start: 20170421, end: 20170606
  14. METOPROLOL TARTRATE. [Concomitant]
     Active Substance: METOPROLOL TARTRATE
     Dosage: 25 MG, UNK
     Route: 065
     Dates: start: 20170320, end: 20170601

REACTIONS (2)
  - Abdominal infection [Recovered/Resolved]
  - Abdominal pain [Recovered/Resolved]

NARRATIVE: CASE EVENT DATE: 20170430
